FAERS Safety Report 17261537 (Version 2)
Quarter: 2020Q1

REPORT INFORMATION
  Report Type: Spontaneous
  Country: FR (occurrence: FR)
  Receive Date: 20200113
  Receipt Date: 20200115
  Transmission Date: 20200409
  Serious: Yes (Death)
  Sender: FDA-Public Use
  Company Number: FR-MYLANLABS-2020M1004097

PATIENT
  Age: 55 Year
  Sex: Female
  Weight: 65 kg

DRUGS (6)
  1. CISPLATIN MYLAN [Suspect]
     Active Substance: CISPLATIN
     Indication: GASTRIC CANCER
     Dosage: 80 MG/M2 SOIT 134MG
     Route: 042
     Dates: start: 20190910, end: 20190910
  2. METHYLPREDNISOLONE. [Suspect]
     Active Substance: METHYLPREDNISOLONE
     Indication: ANTIEMETIC SUPPORTIVE CARE
     Dosage: 80MG A J1 PUIS 40MG DE J2 A J5
     Route: 042
     Dates: start: 20190910, end: 20190915
  3. HERCEPTIN [Suspect]
     Active Substance: TRASTUZUMAB
     Indication: GASTRIC CANCER
     Dosage: 8MG/KG SOIT 496MG
     Route: 042
     Dates: start: 20190910, end: 20190910
  4. EMEND [Concomitant]
     Active Substance: APREPITANT
     Indication: ANTIEMETIC SUPPORTIVE CARE
     Dosage: 125MG A J1 PUIS 80MG J2-J3
     Route: 048
     Dates: start: 20190910, end: 20190912
  5. FLUOROURACILE ACCORD [Suspect]
     Active Substance: FLUOROURACIL
     Indication: GASTRIC CANCER
     Dosage: 4000MG/M2 SUR 120H MAIS ARRET PRECOCE
     Route: 042
     Dates: start: 20190910, end: 20190912
  6. ONDANSETRON [Concomitant]
     Active Substance: ONDANSETRON
     Indication: ANTIEMETIC SUPPORTIVE CARE
     Dosage: 8 MILLIGRAM, CYCLE
     Route: 042
     Dates: start: 20190910, end: 20190910

REACTIONS (1)
  - Cardiac failure [Fatal]

NARRATIVE: CASE EVENT DATE: 20190911
